FAERS Safety Report 6998244-8 (Version None)
Quarter: 2010Q3

REPORT INFORMATION
  Report Type: 
  Country: None (occurrence: None)
  Receive Date: 20100920
  Receipt Date: 20090729
  Transmission Date: 20110219
  Serious: Yes (Other)
  Sender: FDA-Public Use
  Company Number: US-ASTRAZENECA-2007UW13880

PATIENT
  Age: 391 Month
  Sex: Female
  Weight: 54.4 kg

DRUGS (38)
  1. SEROQUEL [Suspect]
     Indication: SLEEP DISORDER
     Dosage: 1200 MG
     Route: 048
     Dates: start: 20020113, end: 20051201
  2. SEROQUEL [Suspect]
     Indication: BIPOLAR DISORDER
     Dosage: 1200 MG
     Route: 048
     Dates: start: 20020113, end: 20051201
  3. SEROQUEL [Suspect]
     Indication: BIPOLAR I DISORDER
     Dosage: 1200 MG
     Route: 048
     Dates: start: 20020113, end: 20051201
  4. SEROQUEL [Suspect]
     Dosage: 1200 MG
     Route: 048
     Dates: start: 20020113
  5. SEROQUEL [Suspect]
     Dosage: 1200 MG
     Route: 048
     Dates: start: 20020113
  6. SEROQUEL [Suspect]
     Dosage: 1200 MG
     Route: 048
     Dates: start: 20020113
  7. SEROQUEL [Suspect]
     Dosage: 100-300 MG
     Route: 048
     Dates: start: 20030212
  8. SEROQUEL [Suspect]
     Dosage: 100-300 MG
     Route: 048
     Dates: start: 20030212
  9. SEROQUEL [Suspect]
     Dosage: 100-300 MG
     Route: 048
     Dates: start: 20030212
  10. TOPROL-XL [Concomitant]
     Dates: start: 20020507
  11. ALPRAZOLAM [Concomitant]
     Dosage: 0.5-2 MG
     Dates: start: 20021104
  12. CLONIDINE [Concomitant]
     Dosage: 0.1-0.2 MG
     Dates: start: 20050702
  13. LOTREL [Concomitant]
     Dosage: 5-20 MG
     Dates: start: 20021104
  14. GLIMEPIRIDE [Concomitant]
     Dates: start: 20060720
  15. REQUIP [Concomitant]
     Dates: start: 20060425
  16. TRILEPTAL [Concomitant]
     Dates: start: 20060718
  17. ABILIFY [Concomitant]
     Dosage: 20-30 MG
     Dates: start: 20051228
  18. AMBIEN [Concomitant]
     Dosage: 6.25-10 MG
     Dates: start: 20040915
  19. LIPITOR [Concomitant]
     Dates: start: 20060804
  20. NEXIUM [Concomitant]
     Dates: start: 20060502
  21. ACTOS [Concomitant]
     Dosage: 15-30 MG
     Dates: start: 20060807
  22. LEXAPRO [Concomitant]
     Dosage: 10-20 MG
     Dates: start: 20021003
  23. PREMARIN [Concomitant]
     Dates: start: 20061031
  24. CARISOPRODOL [Concomitant]
     Dates: start: 20061031
  25. MONOPRIL [Concomitant]
     Dosage: 20/12.5
     Dates: start: 20020903
  26. GUAIFENEX LA [Concomitant]
     Dates: start: 20020920
  27. BUSPIRONE HCL [Concomitant]
     Dates: start: 20021003
  28. DEPAKOTE [Concomitant]
     Dates: start: 20030116
  29. ESKALITH CR [Concomitant]
     Dosage: 300-450 MG
     Dates: start: 20030603
  30. CEPHALEXIN [Concomitant]
     Dates: start: 20030525
  31. ROZEREM [Concomitant]
     Dates: start: 20060525
  32. FUROSEMIDE [Concomitant]
     Dates: start: 20030702
  33. DIAZEPAM [Concomitant]
     Dates: start: 20030708
  34. METRONIDAZOLE [Concomitant]
     Dates: start: 20030807
  35. LEVAQUIN [Concomitant]
     Dates: start: 20030829
  36. GEODON [Concomitant]
     Dates: start: 20040915
  37. LUNESTA [Concomitant]
     Dates: start: 20040915
  38. HALDOL [Concomitant]

REACTIONS (6)
  - DIABETES MELLITUS [None]
  - DIABETIC KETOACIDOSIS [None]
  - PANCREATITIS ACUTE [None]
  - PANCREATITIS CHRONIC [None]
  - TYPE 1 DIABETES MELLITUS [None]
  - TYPE 2 DIABETES MELLITUS [None]
